FAERS Safety Report 8791232 (Version 2)
Quarter: 2013Q1

REPORT INFORMATION
  Report Type: Spontaneous
  Country: JP (occurrence: None)
  Receive Date: 20120911
  Receipt Date: 20121211
  Transmission Date: 20140127
  Serious: Yes (Hospitalization, Other)
  Sender: FDA-Public Use
  Company Number: ADR-2012-01668

PATIENT
  Sex: Female
  Weight: 17 kg

DRUGS (7)
  1. GABALON [Suspect]
     Indication: CEREBRAL PALSY
  2. PO ANTISPASMODICS [Concomitant]
  3. STOMACH MEDICINE [Concomitant]
  4. EXPECTORANT [Concomitant]
  5. DANTRIUM [Concomitant]
  6. ARTANE [Concomitant]
  7. PHENOBAL [Concomitant]

REACTIONS (7)
  - Constipation [None]
  - Abdominal distension [None]
  - Gastrointestinal hypomotility [None]
  - No therapeutic response [None]
  - Muscle spasticity [None]
  - Gastrointestinal disorder [None]
  - Swelling [None]
